FAERS Safety Report 7232693-8 (Version None)
Quarter: 2011Q1

REPORT INFORMATION
  Report Type: 
  Country: None (occurrence: None)
  Receive Date: 20110119
  Receipt Date: 20110117
  Transmission Date: 20110831
  Serious: Yes (Other)
  Sender: FDA-Public Use
  Company Number: ES-BRISTOL-MYERS SQUIBB COMPANY-15489545

PATIENT
  Age: 45 Year
  Sex: Male

DRUGS (4)
  1. PREZISTA [Suspect]
     Indication: HIV INFECTION
     Dosage: PREZISTA 400 MG
     Dates: start: 20101116
  2. NORVIR [Suspect]
     Indication: HIV INFECTION
     Dosage: 1DF:100 UNIT NOS
     Dates: start: 20091027
  3. TRUVADA [Suspect]
     Indication: HIV INFECTION
     Dosage: 1DF:200 MG/245MG
     Dates: start: 20091027
  4. REYATAZ [Suspect]
     Indication: HIV INFECTION
     Dates: start: 20091027

REACTIONS (1)
  - RENAL COLIC [None]
